FAERS Safety Report 17963628 (Version 1)
Quarter: 2020Q2

REPORT INFORMATION
  Report Type: Spontaneous
  Country: US (occurrence: US)
  Receive Date: 20200630
  Receipt Date: 20200630
  Transmission Date: 20200714
  Serious: No
  Sender: FDA-Public Use
  Company Number: None

PATIENT
  Age: 33 Year
  Sex: Female
  Weight: 77 kg

DRUGS (3)
  1. DEXAMETHASONE. [Concomitant]
     Active Substance: DEXAMETHASONE
     Dates: start: 20200625, end: 20200630
  2. REMDESIVIR LYOPHILIZED POWDER [Suspect]
     Active Substance: REMDESIVIR
     Indication: COVID-19 PNEUMONIA
     Route: 040
     Dates: start: 20200626, end: 20200630
  3. TOCILIZUMAB. [Concomitant]
     Active Substance: TOCILIZUMAB
     Dates: start: 20200626, end: 20200626

REACTIONS (2)
  - Blood creatine phosphokinase increased [None]
  - Acute kidney injury [None]

NARRATIVE: CASE EVENT DATE: 20200628
